FAERS Safety Report 6557291-0 (Version None)
Quarter: 2010Q1

REPORT INFORMATION
  Report Type: 
  Country: None (occurrence: None)
  Receive Date: 20100129
  Receipt Date: 20100118
  Transmission Date: 20100710
  Serious: Yes (Hospitalization)
  Sender: FDA-Public Use
  Company Number: IT-RANBAXY-2010RR-30566

PATIENT
  Sex: Female

DRUGS (1)
  1. CLARITHROMYCIN [Suspect]

REACTIONS (2)
  - PRURITUS [None]
  - RASH [None]
